FAERS Safety Report 8518523-2 (Version None)
Quarter: 2012Q3

REPORT INFORMATION
  Report Type: 
  Country: None (occurrence: None)
  Receive Date: 20120718
  Receipt Date: 20120710
  Transmission Date: 20120928
  Serious: Yes (Death)
  Sender: FDA-Public Use
  Company Number: JP-JNJFOC-20120707419

PATIENT
  Sex: Male

DRUGS (22)
  1. SULFAMETHOXAZOLE AND TRIMETHOPRIM [Suspect]
     Indication: PNEUMONIA
     Route: 048
     Dates: start: 20120227, end: 20120318
  2. SULFAMETHOXAZOLE AND TRIMETHOPRIM [Concomitant]
     Route: 048
     Dates: start: 20120319
  3. FAMOTIDINE [Concomitant]
     Indication: PNEUMONIA
     Route: 065
     Dates: start: 20120228, end: 20120229
  4. CLARITHROMYCIN [Concomitant]
     Indication: PNEUMONIA
     Route: 048
     Dates: start: 20120330
  5. GANCICLOVIR [Concomitant]
     Indication: PNEUMONIA
     Route: 065
     Dates: start: 20120326
  6. RACOL [Concomitant]
     Indication: PNEUMONIA
     Route: 048
     Dates: start: 20120301
  7. SOLU-MEDROL [Concomitant]
     Indication: PNEUMONIA
     Route: 065
     Dates: start: 20120227, end: 20120311
  8. LASIX [Concomitant]
     Indication: PNEUMONIA
     Route: 065
     Dates: start: 20120227, end: 20120301
  9. DOPAMINE HCL [Concomitant]
     Indication: PNEUMONIA
     Route: 065
     Dates: start: 20120227, end: 20120318
  10. AMLODIPINE BESYLATE [Concomitant]
     Indication: PNEUMONIA
     Route: 048
     Dates: start: 20120302, end: 20120325
  11. DORIPENEM MONOHYDRATE [Suspect]
     Indication: PNEUMONIA
     Route: 041
     Dates: start: 20120228, end: 20120312
  12. PREDNISOLONE [Concomitant]
     Indication: PNEUMONIA
     Route: 065
     Dates: start: 20120312, end: 20120319
  13. ELASPOL [Concomitant]
     Indication: PNEUMONIA
     Route: 065
     Dates: start: 20120227, end: 20120311
  14. RISPERDAL [Concomitant]
     Indication: PNEUMONIA
     Route: 048
     Dates: start: 20120302
  15. CIPROFLOXACIN [Suspect]
     Indication: PNEUMONIA
     Route: 065
     Dates: start: 20120227, end: 20120304
  16. PENTAMIDINE ISETHIONATE [Concomitant]
     Indication: PNEUMONIA
     Route: 065
     Dates: start: 20120327
  17. MUCOSOLVAN [Concomitant]
     Indication: PNEUMONIA
     Route: 048
     Dates: start: 20120302
  18. DORIPENEM MONOHYDRATE [Suspect]
     Route: 041
     Dates: start: 20120227, end: 20120227
  19. LANSOPRAZOLE [Concomitant]
     Indication: PNEUMONIA
     Route: 048
     Dates: start: 20120301
  20. INTRAVENOUS HYPERALIMENTATION [Concomitant]
     Route: 042
  21. HEPARIN SODIUM [Concomitant]
     Indication: PNEUMONIA
     Route: 065
     Dates: start: 20120227
  22. MAGLAX [Concomitant]
     Route: 048

REACTIONS (3)
  - ASPARTATE AMINOTRANSFERASE INCREASED [None]
  - ACUTE RESPIRATORY DISTRESS SYNDROME [None]
  - ALANINE AMINOTRANSFERASE INCREASED [None]
